FAERS Safety Report 6671612-X (Version None)
Quarter: 2010Q2

REPORT INFORMATION
  Report Type: 
  Country: None (occurrence: None)
  Receive Date: 20100406
  Receipt Date: 20100406
  Transmission Date: 20101027
  Serious: Yes (Life-Threatening)
  Sender: FDA-Public Use
  Company Number: None

PATIENT
  Age: 70 Year
  Sex: Male
  Weight: 75.9 kg

DRUGS (1)
  1. CEFAZOLIN [Suspect]
     Indication: SURGERY
     Dosage: 1 GM ONCE IV
     Route: 042
     Dates: start: 20100114, end: 20100114

REACTIONS (4)
  - ANAPHYLACTIC REACTION [None]
  - GENERALISED ERYTHEMA [None]
  - HYPOTENSION [None]
  - NO THERAPEUTIC RESPONSE [None]
